FAERS Safety Report 9844080 (Version 2)
Quarter: 2014Q1

REPORT INFORMATION
  Report Type: Spontaneous
  Country: JP (occurrence: JP)
  Receive Date: 20140127
  Receipt Date: 20140210
  Transmission Date: 20141002
  Serious: Yes (Death)
  Sender: FDA-Public Use
  Company Number: JP-ROCHE-1337910

PATIENT
  Age: 67 Year
  Sex: Female

DRUGS (4)
  1. ACTEMRA [Suspect]
     Indication: RHEUMATOID ARTHRITIS
     Route: 058
     Dates: start: 20130823, end: 20131114
  2. LASIX [Concomitant]
     Route: 048
     Dates: start: 20131018, end: 20131114
  3. NEO-MINOPHAGEN C [Concomitant]
     Route: 042
     Dates: start: 20131015, end: 20131017
  4. FLAVIN ADENINE DINUCLEOTIDE [Concomitant]
     Route: 042
     Dates: start: 20131015, end: 20131017

REACTIONS (1)
  - Bile duct cancer [Fatal]
